FAERS Safety Report 10211637 (Version 2)
Quarter: 2015Q3

REPORT INFORMATION
  Report Type: Spontaneous
  Country: US (occurrence: US)
  Receive Date: 20140602
  Receipt Date: 20150910
  Transmission Date: 20151125
  Serious: No
  Sender: FDA-Public Use
  Company Number: US-PFIZER INC-2014147361

PATIENT
  Age: 37 Year
  Sex: Male

DRUGS (1)
  1. AMLODIPINE BESILATE [Suspect]
     Active Substance: AMLODIPINE BESYLATE
     Dosage: UNK

REACTIONS (2)
  - Stomatitis [Unknown]
  - Blood pressure inadequately controlled [Unknown]
